FAERS Safety Report 7201975-8 (Version None)
Quarter: 2010Q4

REPORT INFORMATION
  Report Type: 
  Country: None (occurrence: None)
  Receive Date: 20101229
  Receipt Date: 20101221
  Transmission Date: 20110411
  Serious: Yes (Hospitalization)
  Sender: FDA-Public Use
  Company Number: IE-AMGEN-IRLSP2010003332

PATIENT

DRUGS (5)
  1. NEULASTA [Suspect]
     Indication: CHEMOTHERAPY
     Dosage: 6 MG, Q3WK
     Route: 058
     Dates: start: 20100923, end: 20100923
  2. MOTILIUM                           /00498201/ [Concomitant]
  3. SENNA                              /00142201/ [Concomitant]
  4. PALLADONE                          /00080901/ [Concomitant]
  5. CIPROXIN                           /00697201/ [Concomitant]

REACTIONS (1)
  - COMA [None]
